FAERS Safety Report 9009431 (Version 1)
Quarter: 2013Q1

REPORT INFORMATION
  Report Type: Spontaneous
  Country: US (occurrence: US)
  Receive Date: 20130110
  Receipt Date: 20130110
  Transmission Date: 20140127
  Serious: No
  Sender: FDA-Public Use
  Company Number: US-TARO-2012P1010652

PATIENT
  Age: 77 Year
  Sex: Female
  Weight: 56.7 kg

DRUGS (4)
  1. CLOBETASOL PROPIONATE [Suspect]
     Indication: PSORIASIS
     Dates: start: 2007
  2. SYNTHROID [Concomitant]
  3. LATANOPROST 0.005% [Concomitant]
     Dates: start: 201202
  4. UNSPECIFIED ^WATER PILL^ [Concomitant]

REACTIONS (2)
  - Psoriasis [Not Recovered/Not Resolved]
  - Inappropriate schedule of drug administration [Not Recovered/Not Resolved]
